FAERS Safety Report 4552405-6 (Version None)
Quarter: 2005Q1

REPORT INFORMATION
  Report Type: 
  Country: None (occurrence: None)
  Receive Date: 20050112
  Receipt Date: 20050112
  Transmission Date: 20050727
  Serious: Yes (Other)
  Sender: FDA-Public Use
  Company Number: None

PATIENT
  Age: 57 Year
  Sex: Female

DRUGS (1)
  1. CITALOPRAM 40MG [Suspect]
     Indication: ANXIETY
     Dosage: 1 TAB  PO QD   ON BRAND FOR 1 YEAR, GENERIC FOR APPROX  MONTH
     Route: 048

REACTIONS (4)
  - DRY MOUTH [None]
  - NERVOUSNESS [None]
  - PANIC ATTACK [None]
  - PHARMACEUTICAL PRODUCT COMPLAINT [None]
